FAERS Safety Report 24105030 (Version 6)
Quarter: 2024Q4

REPORT INFORMATION
  Report Type: Report from Study
  Country: CN (occurrence: CN)
  Receive Date: 20240717
  Receipt Date: 20241225
  Transmission Date: 20250115
  Serious: Yes (Hospitalization, Other)
  Sender: ROCHE
  Company Number: CN-ROCHE-3564129

PATIENT
  Age: 61 Year
  Sex: Male

DRUGS (49)
  1. POLATUZUMAB VEDOTIN [Suspect]
     Active Substance: POLATUZUMAB VEDOTIN
     Indication: Diffuse large B-cell lymphoma
     Dosage: SUBSEQUENT DOSES RECEIVED ON: 21/MAR/2024, 11/APR/2024 AND 03/MAY/2024, 21/JUN/2024, 15/JUL/2024 AND
     Route: 041
     Dates: start: 20240321
  2. DOXORUBICIN HYDROCHLORIDE [Suspect]
     Active Substance: DOXORUBICIN HYDROCHLORIDE
     Indication: Diffuse large B-cell lymphoma
     Route: 065
  3. PREDNISONE ACETATE [Suspect]
     Active Substance: PREDNISONE ACETATE
     Indication: Diffuse large B-cell lymphoma
     Route: 065
  4. RITUXIMAB [Suspect]
     Active Substance: RITUXIMAB
     Indication: Diffuse large B-cell lymphoma
     Dosage: SUBSEQUENT DOSES RECEIVED ON: 09/APR/2024 AND 01/MAY/2024
     Route: 065
     Dates: start: 20240319, end: 20240319
  5. RITUXIMAB [Suspect]
     Active Substance: RITUXIMAB
     Route: 042
     Dates: start: 20240410, end: 20240410
  6. RITUXIMAB [Suspect]
     Active Substance: RITUXIMAB
     Route: 042
     Dates: start: 20240501, end: 20240501
  7. RITUXIMAB [Suspect]
     Active Substance: RITUXIMAB
     Route: 042
     Dates: start: 20240716, end: 20240716
  8. CYCLOPHOSPHAMIDE [Suspect]
     Active Substance: CYCLOPHOSPHAMIDE
     Indication: Diffuse large B-cell lymphoma
     Route: 065
  9. CEFTRIAXONE [Concomitant]
     Active Substance: CEFTRIAXONE
  10. ROXATIDINE ACETATE HYDROCHLORIDE [Concomitant]
     Active Substance: ROXATIDINE ACETATE HYDROCHLORIDE
     Dosage: 07/AUG/2024
     Route: 042
     Dates: start: 20240315, end: 20240322
  11. MAGNESIUM ISOGLYCYRRHIZINATE [Concomitant]
     Active Substance: MAGNESIUM ISOGLYCYRRHIZINATE
     Route: 042
     Dates: start: 20240315, end: 20240322
  12. MAGNESIUM ISOGLYCYRRHIZINATE [Concomitant]
     Active Substance: MAGNESIUM ISOGLYCYRRHIZINATE
     Route: 042
     Dates: start: 20240409, end: 20240411
  13. MAGNESIUM ISOGLYCYRRHIZINATE [Concomitant]
     Active Substance: MAGNESIUM ISOGLYCYRRHIZINATE
     Dosage: 15/JUL/2024, 07/AUG/2024
     Route: 042
     Dates: start: 20240430, end: 20240503
  14. DEXAMETHASONE SODIUM PHOSPHATE [Concomitant]
     Active Substance: DEXAMETHASONE SODIUM PHOSPHATE
     Dosage: ONCE
     Route: 029
     Dates: start: 20240318, end: 20240318
  15. DEXAMETHASONE SODIUM PHOSPHATE [Concomitant]
     Active Substance: DEXAMETHASONE SODIUM PHOSPHATE
     Dosage: ONCE
     Route: 030
     Dates: start: 20240319, end: 20240319
  16. DEXAMETHASONE SODIUM PHOSPHATE [Concomitant]
     Active Substance: DEXAMETHASONE SODIUM PHOSPHATE
     Dosage: ONCE
     Route: 042
     Dates: start: 20240321, end: 20240321
  17. DEXAMETHASONE SODIUM PHOSPHATE [Concomitant]
     Active Substance: DEXAMETHASONE SODIUM PHOSPHATE
     Route: 042
     Dates: start: 20240315, end: 20240319
  18. DEXAMETHASONE SODIUM PHOSPHATE [Concomitant]
     Active Substance: DEXAMETHASONE SODIUM PHOSPHATE
     Dosage: ONLY ONCE?19/JUN/2024, 08/AUG/2024
     Route: 042
     Dates: start: 20240430, end: 20240430
  19. CYTARABINE [Concomitant]
     Active Substance: CYTARABINE
     Dosage: ONCE?19/JUN/2024
     Route: 029
     Dates: start: 20240318, end: 20240318
  20. LIDOCAINE HYDROCHLORIDE [Concomitant]
     Active Substance: LIDOCAINE HYDROCHLORIDE
     Dosage: ONCE
     Route: 050
     Dates: start: 20240318, end: 20240318
  21. METHOTREXATE [Concomitant]
     Active Substance: METHOTREXATE
     Dosage: 19/JUN/2024?16/JUL/2024
     Route: 042
     Dates: start: 20240318, end: 20240319
  22. PROMETHAZINE HYDROCHLORIDE [Concomitant]
     Active Substance: PROMETHAZINE HYDROCHLORIDE
     Dosage: ONCE
     Route: 030
     Dates: start: 20240321, end: 20240321
  23. PROMETHAZINE HYDROCHLORIDE [Concomitant]
     Active Substance: PROMETHAZINE HYDROCHLORIDE
     Dosage: ONCE
     Route: 042
     Dates: start: 20240319, end: 20240320
  24. PROMETHAZINE HYDROCHLORIDE [Concomitant]
     Active Substance: PROMETHAZINE HYDROCHLORIDE
     Dosage: ONCE?19/JUN/20242, 21/JUN/2024, 16/JUL/2024, 08/AUG/2024
     Route: 042
     Dates: start: 20240501, end: 20240501
  25. DEXRAZOXANE [Concomitant]
     Active Substance: DEXRAZOXANE
     Dosage: ONCE ?20/JUN/2024
     Route: 042
     Dates: start: 20240320, end: 20240320
  26. DEXRAZOXANE [Concomitant]
     Active Substance: DEXRAZOXANE
     Dosage: OCE
     Route: 042
     Dates: start: 20240320, end: 20240320
  27. DEXRAZOXANE [Concomitant]
     Active Substance: DEXRAZOXANE
     Dosage: ONCE ?17/JUL/2024, 08/AUG/2024
     Route: 042
     Dates: start: 20240501, end: 20240502
  28. ENTECAVIR [Concomitant]
     Active Substance: ENTECAVIR
     Dosage: 1 TABLET
     Route: 048
     Dates: start: 20240322, end: 2024
  29. ENTECAVIR [Concomitant]
     Active Substance: ENTECAVIR
     Dosage: EVERY NIGHT
     Route: 048
     Dates: start: 20240409, end: 20240411
  30. ENTECAVIR [Concomitant]
     Active Substance: ENTECAVIR
     Dosage: EVERY NIGHT?24/JUN/2024, 15/JUL/2024,  18/JUL/2024, 07/AUG/2024
     Route: 048
     Dates: start: 20240430, end: 20240503
  31. HERBALS\DIAMMONIUM GLYCYRRHIZINATE [Concomitant]
     Active Substance: HERBALS\DIAMMONIUM GLYCYRRHIZINATE
     Dosage: 3 TABLET?24/JUN/2024, 18/JUL/2024
     Route: 048
     Dates: start: 20240322, end: 20240325
  32. PHOSPHOLIPID [Concomitant]
     Active Substance: PHOSPHOLIPID
     Dosage: 2 CAPSULE
     Route: 048
     Dates: start: 20240322, end: 2024
  33. ESOMEPRAZOLE MAGNESIUM [Concomitant]
     Active Substance: ESOMEPRAZOLE MAGNESIUM
     Dosage: 1 CAPSULE?24/JUN/2024
     Route: 048
     Dates: start: 20240322, end: 2024
  34. BICYCLOL [Concomitant]
     Active Substance: BICYCLOL
     Dosage: 1 TABLET
     Route: 048
     Dates: start: 20240322, end: 2024
  35. CALCIUM CARBONATE\CHOLECALCIFEROL [Concomitant]
     Active Substance: CALCIUM CARBONATE\CHOLECALCIFEROL
     Dosage: 1 OTHER
     Route: 048
     Dates: start: 20240409, end: 20240411
  36. CALCIUM CARBONATE\CHOLECALCIFEROL [Concomitant]
     Active Substance: CALCIUM CARBONATE\CHOLECALCIFEROL
     Dosage: 1 OTHER?15/JUL/2024, 07/AUG/2024
     Route: 048
     Dates: start: 20240430, end: 20240503
  37. AMILORIDE HYDROCHLORIDE\HYDROCHLOROTHIAZIDE [Concomitant]
     Active Substance: AMILORIDE HYDROCHLORIDE\HYDROCHLOROTHIAZIDE
     Dosage: 1 TABLET
     Route: 048
     Dates: start: 20240409, end: 20240411
  38. AMILORIDE HYDROCHLORIDE\HYDROCHLOROTHIAZIDE [Concomitant]
     Active Substance: AMILORIDE HYDROCHLORIDE\HYDROCHLOROTHIAZIDE
     Dosage: 1 TABLET?15/JUL/2024, 07/AUG/2024
     Route: 048
     Dates: start: 20240430, end: 20240503
  39. SODIUM POTASSIUM MAGNESIUM CALCIUM AND GLUCOSE [Concomitant]
     Route: 042
     Dates: start: 20240409, end: 20240411
  40. FEBUXOSTAT [Concomitant]
     Active Substance: FEBUXOSTAT
     Route: 048
     Dates: start: 20240409, end: 20240411
  41. FEBUXOSTAT [Concomitant]
     Active Substance: FEBUXOSTAT
     Dosage: 15/JUL/2024, 07/AUG/2024
     Route: 048
     Dates: start: 20240430, end: 20240503
  42. URSODIOL [Concomitant]
     Active Substance: URSODIOL
     Route: 048
     Dates: start: 20240409, end: 20240411
  43. RABEPRAZOLE SODIUM [Concomitant]
     Active Substance: RABEPRAZOLE SODIUM
     Dosage: 15/JUL/2024
     Route: 042
     Dates: start: 20240409, end: 20240411
  44. SODIUM BICARBONATE [Concomitant]
     Active Substance: SODIUM BICARBONATE
     Dosage: 15/JUL/2024, 07/AUG/2024
     Route: 048
     Dates: start: 20240430, end: 20240503
  45. SODIUM BICARBONATE [Concomitant]
     Active Substance: SODIUM BICARBONATE
     Route: 042
     Dates: start: 20240409, end: 20240411
  46. ANF-RHO [Concomitant]
     Active Substance: ANF-RHO
     Dosage: 22/JUN/2024,  18/JUL/2024, 11/AUG/2024
     Route: 058
     Dates: start: 20240411, end: 20240411
  47. ESOMEPRAZOLE SODIUM [Concomitant]
     Active Substance: ESOMEPRAZOLE SODIUM
     Route: 042
     Dates: start: 20240430, end: 20240503
  48. UROKINASE [Concomitant]
     Active Substance: UROKINASE
     Dosage: 100000 OTHER?ONCE?EXTERNAL USE
     Dates: start: 20240619, end: 20240619
  49. METOCLOPRAMIDE HYDROCHLORIDE [Concomitant]
     Active Substance: METOCLOPRAMIDE HYDROCHLORIDE
     Dosage: ONLY ONCE
     Route: 030
     Dates: start: 20240621, end: 20240621

REACTIONS (12)
  - Infection [Recovered/Resolved]
  - Cytomegalovirus infection [Recovered/Resolved]
  - Anaemia [Not Recovered/Not Resolved]
  - Aspartate aminotransferase abnormal [Recovered/Resolved]
  - Neutrophil count decreased [Recovered/Resolved]
  - Aspartate aminotransferase increased [Recovered/Resolved]
  - Platelet count decreased [Recovered/Resolved]
  - Alanine aminotransferase increased [Recovered/Resolved]
  - Stomatitis [Recovered/Resolved]
  - White blood cell count decreased [Recovered/Resolved]
  - Granulocytopenia [Recovered/Resolved]
  - Alanine aminotransferase abnormal [Recovered/Resolved]

NARRATIVE: CASE EVENT DATE: 20240321
